FAERS Safety Report 17909992 (Version 1)
Quarter: 2020Q2

REPORT INFORMATION
  Report Type: Spontaneous
  Country: DE (occurrence: DE)
  Receive Date: 20200617
  Receipt Date: 20200617
  Transmission Date: 20200714
  Serious: Yes (Hospitalization)
  Sender: FDA-Public Use
  Company Number: NVSC2020DE168410

PATIENT
  Age: 69 Year
  Sex: Male

DRUGS (1)
  1. CEFPODOXIME PROXETIL. [Suspect]
     Active Substance: CEFPODOXIME PROXETIL
     Indication: PRODUCT USED FOR UNKNOWN INDICATION
     Dosage: 200 MG, BID (1-0-1-0)
     Route: 065

REACTIONS (4)
  - Vomiting [Unknown]
  - Flank pain [Unknown]
  - Nausea [Unknown]
  - Diarrhoea [Unknown]
